FAERS Safety Report 4771207-9 (Version None)
Quarter: 2005Q3

REPORT INFORMATION
  Report Type: 
  Country: None (occurrence: None)
  Receive Date: 20050914
  Receipt Date: 20050829
  Transmission Date: 20060218
  Serious: Yes (Life-Threatening, Hospitalization)
  Sender: FDA-Public Use
  Company Number: USA0508106688

PATIENT
  Age: 77 Year
  Sex: Female

DRUGS (7)
  1. CYMBALTA [Suspect]
     Indication: DEPRESSION
     Dosage: UNK
     Route: 065
     Dates: start: 20050826
  2. COUMADIN [Concomitant]
  3. AVAPRO [Concomitant]
  4. TAXOL [Concomitant]
  5. PROTON PUMP INHIBITOR [Concomitant]
  6. MARINOL [Concomitant]
  7. PAXIL [Concomitant]

REACTIONS (3)
  - ACIDOSIS [None]
  - DIFFICULT TO WEAN FROM VENTILATOR [None]
  - RESPIRATORY DEPRESSION [None]
